FAERS Safety Report 9109314 (Version 1)
Quarter: 2013Q1

REPORT INFORMATION
  Report Type: Spontaneous
  Country: AU (occurrence: AU)
  Receive Date: 20130222
  Receipt Date: 20130222
  Transmission Date: 20140127
  Serious: Yes (Other)
  Sender: FDA-Public Use
  Company Number: PHHY2013AU017495

PATIENT
  Sex: Female

DRUGS (4)
  1. TERBINAFINE [Suspect]
     Dosage: UNK UKN, UNK
  2. PANTOPRAZOLE [Concomitant]
     Dosage: UNK UKN, UNK
  3. SALBUTAMOL [Concomitant]
     Dosage: UNK UKN, UNK
  4. BUDESONIDE [Concomitant]
     Dosage: UNK UKN, UNK

REACTIONS (2)
  - Ventricular extrasystoles [Unknown]
  - Erythema multiforme [Unknown]
